FAERS Safety Report 4637388-2 (Version None)
Quarter: 2005Q2

REPORT INFORMATION
  Report Type: 
  Country: None (occurrence: None)
  Receive Date: 20050325
  Receipt Date: 20050126
  Transmission Date: 20051028
  Serious: No
  Sender: FDA-Public Use
  Company Number: USA041285367

PATIENT
  Age: 80 Year
  Sex: Female
  Weight: 53 kg

DRUGS (7)
  1. FORTEO [Suspect]
     Indication: OSTEOPOROSIS
     Dates: start: 20041111
  2. CALCIUM GLUCONATE [Concomitant]
  3. VITAMIN D [Concomitant]
  4. COUMADIN [Concomitant]
  5. LANOXIN (DIGOXIN STREULI) [Concomitant]
  6. HYDROCHLOROTHIAZIDE [Concomitant]
  7. ULTRACET [Concomitant]

REACTIONS (9)
  - BLOOD CALCIUM INCREASED [None]
  - BOWEL SOUNDS ABNORMAL [None]
  - DYSPNOEA [None]
  - EPISTAXIS [None]
  - HEART SOUNDS ABNORMAL [None]
  - MUSCLE SPASMS [None]
  - OEDEMA PERIPHERAL [None]
  - PRURITUS [None]
  - RASH MACULAR [None]
